FAERS Safety Report 18579691 (Version 5)
Quarter: 2021Q3

REPORT INFORMATION
  Report Type: Spontaneous
  Country: GB (occurrence: GB)
  Receive Date: 20201204
  Receipt Date: 20210804
  Transmission Date: 20211014
  Serious: No
  Sender: FDA-Public Use
  Company Number: GB-PFIZER INC-2020472447

PATIENT
  Age: 17 Year
  Sex: Female
  Weight: 71.2 kg

DRUGS (2)
  1. SAYANA [Suspect]
     Active Substance: MEDROXYPROGESTERONE
     Indication: CONTRACEPTION
     Dosage: 104 MG, EVERY 13 WEEKS
     Route: 058
     Dates: start: 201810
  2. SAYANA [Suspect]
     Active Substance: MEDROXYPROGESTERONE
     Dosage: UNK
     Route: 058

REACTIONS (2)
  - Incorrect dose administered by device [Unknown]
  - Device occlusion [Unknown]
